FAERS Safety Report 5392020-8 (Version None)
Quarter: 2007Q3

REPORT INFORMATION
  Report Type: 
  Country: None (occurrence: None)
  Receive Date: 20070717
  Receipt Date: 20070717
  Transmission Date: 20080115
  Serious: Yes (Hospitalization)
  Sender: FDA-Public Use
  Company Number: None

PATIENT
  Sex: Female
  Weight: 83.9 kg

DRUGS (8)
  1. CARBOPLATIN [Suspect]
     Indication: BREAST CANCER METASTATIC
     Dosage: 2 AUC WEEKLY 1X IV
     Route: 042
     Dates: start: 20070626
  2. CETUXIMAB [Suspect]
     Indication: BREAST CANCER METASTATIC
     Dosage: 400MG/M2 WEEKLY - IX IV
     Route: 042
     Dates: start: 20070626
  3. ONDANSERTRON [Concomitant]
  4. PALONOSETON [Concomitant]
  5. OXYCONTIN [Concomitant]
  6. OXYCODONE HCL [Concomitant]
  7. COUMADIN [Concomitant]
  8. LOVENOX [Concomitant]

REACTIONS (2)
  - PAIN [None]
  - PULMONARY EMBOLISM [None]
